FAERS Safety Report 24193699 (Version 1)
Quarter: 2024Q3

REPORT INFORMATION
  Report Type: Spontaneous
  Country: US (occurrence: US)
  Receive Date: 20240809
  Receipt Date: 20240809
  Transmission Date: 20241017
  Serious: Yes (Hospitalization, Other)
  Sender: ACCORD
  Company Number: US-Accord-440444

PATIENT
  Age: 1 Hour
  Sex: Male

DRUGS (2)
  1. ESCITALOPRAM [Suspect]
     Active Substance: ESCITALOPRAM OXALATE
  2. HYDROXYZINE [Suspect]
     Active Substance: HYDROXYZINE HYDROCHLORIDE

REACTIONS (6)
  - Foetal exposure during pregnancy [Unknown]
  - Feeling jittery [Recovered/Resolved]
  - Shoulder dystocia [Recovered/Resolved]
  - Musculoskeletal stiffness [Recovered/Resolved]
  - Dyskinesia [Recovered/Resolved]
  - Tongue thrust [Recovered/Resolved]
